FAERS Safety Report 4295660-2 (Version None)
Quarter: 2004Q1

REPORT INFORMATION
  Report Type: 
  Country: None (occurrence: None)
  Receive Date: 20040212
  Receipt Date: 20040202
  Transmission Date: 20041129
  Serious: Yes (Hospitalization, Other)
  Sender: FDA-Public Use
  Company Number: HQWYE792703FEB04

PATIENT
  Age: 36 Year
  Sex: Female
  Weight: 47.4 kg

DRUGS (4)
  1. RAPAMUNE [Suspect]
     Indication: IMMUNOSUPPRESSION
     Dosage: (1 MG) 5 IN THE AM, ORAL
     Route: 048
     Dates: start: 20020530
  2. TACROLIMUS (TACROLIMUS,) [Suspect]
     Indication: IMMUNOSUPPRESSION
     Dosage: (1 MG), 2 IN AM, 1.5 I N PM, ORAL
     Route: 048
     Dates: start: 20020530
  3. LESCOL [Concomitant]
  4. SYNTHROID (LEVOTHYROXINE SDOIUM) [Concomitant]

REACTIONS (7)
  - APPENDICITIS [None]
  - ASCITES [None]
  - BLOOD CREATININE INCREASED [None]
  - BLOOD UREA INCREASED [None]
  - COLITIS [None]
  - HAEMATOCRIT DECREASED [None]
  - MASS [None]
